FAERS Safety Report 5393886-8 (Version None)
Quarter: 2007Q3

REPORT INFORMATION
  Report Type: 
  Country: None (occurrence: None)
  Receive Date: 20070723
  Receipt Date: 20070713
  Transmission Date: 20080115
  Serious: Yes (Life-Threatening, Hospitalization, Other)
  Sender: FDA-Public Use
  Company Number: B0479982A

PATIENT
  Age: 38 Year
  Sex: Female
  Weight: 56 kg

DRUGS (4)
  1. KIVEXA [Suspect]
     Indication: DRUG USE FOR UNKNOWN INDICATION
     Dosage: 900MG PER DAY
     Route: 048
     Dates: start: 20060801, end: 20070202
  2. INVIRASE [Suspect]
     Indication: DRUG USE FOR UNKNOWN INDICATION
     Dosage: 1000MG TWICE PER DAY
     Route: 048
     Dates: start: 20060801, end: 20070202
  3. ORTHO EVRA [Concomitant]
     Indication: DRUG USE FOR UNKNOWN INDICATION
     Dosage: 6MG PER DAY
     Route: 062
  4. NORVIR [Concomitant]
     Indication: DRUG USE FOR UNKNOWN INDICATION
     Dosage: 100MG TWICE PER DAY
     Route: 048
     Dates: start: 20060801, end: 20070202

REACTIONS (20)
  - ABDOMINAL DISCOMFORT [None]
  - ABDOMINAL PAIN [None]
  - ABDOMINAL PAIN UPPER [None]
  - ANTINUCLEAR ANTIBODY INCREASED [None]
  - COAGULATION FACTOR DECREASED [None]
  - DIARRHOEA [None]
  - ENCEPHALOPATHY [None]
  - GALLBLADDER DISORDER [None]
  - GASTROENTERITIS [None]
  - HAEMATURIA [None]
  - HEPATIC ENCEPHALOPATHY [None]
  - HEPATIC FAILURE [None]
  - HEPATIC NECROSIS [None]
  - HEPATOCELLULAR DAMAGE [None]
  - JAUNDICE [None]
  - MENORRHAGIA [None]
  - NAUSEA [None]
  - PROTHROMBIN TIME SHORTENED [None]
  - TRANSAMINASES INCREASED [None]
  - VOMITING [None]
